FAERS Safety Report 8359761-1 (Version None)
Quarter: 2012Q2

REPORT INFORMATION
  Report Type: 
  Country: None (occurrence: None)
  Receive Date: 20120515
  Receipt Date: 20120507
  Transmission Date: 20120825
  Serious: Yes (Hospitalization, Other)
  Sender: FDA-Public Use
  Company Number: PHHY2012AT030789

PATIENT
  Sex: Female

DRUGS (3)
  1. CO-MEPRIL [Concomitant]
     Indication: BLOOD PRESSURE INCREASED
     Dosage: 1 DF, QD
  2. GILENYA [Suspect]
     Dosage: 0.5 MG, QD
     Route: 048
     Dates: start: 20111004, end: 20120410
  3. MEPRIL [Concomitant]
     Indication: BLOOD PRESSURE INCREASED
     Dosage: 20 MG, QD
     Route: 048

REACTIONS (3)
  - ACUTE ABDOMEN [None]
  - LYMPHADENITIS [None]
  - ABDOMINAL INFECTION [None]
